FAERS Safety Report 19685206 (Version 1)
Quarter: 2021Q3

REPORT INFORMATION
  Report Type: Spontaneous
  Country: US (occurrence: US)
  Receive Date: 20210811
  Receipt Date: 20210811
  Transmission Date: 20211014
  Serious: No
  Sender: FDA-Public Use
  Company Number: US-CELGENEUS-USA-20210801868

PATIENT
  Age: 74 Year
  Sex: Male

DRUGS (7)
  1. REVLIMID [Suspect]
     Active Substance: LENALIDOMIDE
     Dosage: 10 MILLIGRAM
     Route: 048
     Dates: start: 202108
  2. REVLIMID [Suspect]
     Active Substance: LENALIDOMIDE
     Dosage: 10 MILLIGRAM
     Route: 048
     Dates: start: 201106
  3. REVLIMID [Suspect]
     Active Substance: LENALIDOMIDE
     Dosage: 10?15 MILLIGRAM
     Route: 048
     Dates: start: 201406
  4. REVLIMID [Suspect]
     Active Substance: LENALIDOMIDE
     Indication: PLASMA CELL MYELOMA
     Dosage: 25 MILLIGRAM
     Route: 048
     Dates: start: 200908
  5. REVLIMID [Suspect]
     Active Substance: LENALIDOMIDE
     Dosage: 10 MILLIGRAM
     Route: 048
     Dates: start: 201510
  6. REVLIMID [Suspect]
     Active Substance: LENALIDOMIDE
     Dosage: 10?25 MILLIGRAM
     Route: 048
     Dates: start: 201201
  7. REVLIMID [Suspect]
     Active Substance: LENALIDOMIDE
     Dosage: 15?20?15 MILLIGRAM
     Route: 048
     Dates: start: 202009

REACTIONS (1)
  - Platelet count decreased [Unknown]

NARRATIVE: CASE EVENT DATE: 20210805
